FAERS Safety Report 7302344-2 (Version None)
Quarter: 2011Q1

REPORT INFORMATION
  Report Type: 
  Country: None (occurrence: None)
  Receive Date: 20110218
  Receipt Date: 20110215
  Transmission Date: 20110831
  Serious: Yes (Other)
  Sender: FDA-Public Use
  Company Number: US-PFIZER INC-2010140309

PATIENT
  Sex: Male
  Weight: 73.5 kg

DRUGS (3)
  1. SUTENT [Suspect]
     Indication: LIVER INJURY
     Dosage: 12.5 MG, 3X/DAY
     Route: 048
     Dates: start: 20100910
  2. SITAGLIPTIN [Concomitant]
     Indication: DIABETES MELLITUS
     Dosage: UNK
  3. GLYBURIDE [Concomitant]
     Indication: DIABETES MELLITUS
     Dosage: UNK

REACTIONS (1)
  - BLOOD MAGNESIUM DECREASED [None]
